FAERS Safety Report 22585290 (Version 2)
Quarter: 2024Q3

REPORT INFORMATION
  Report Type: Report from Study
  Country: US (occurrence: US)
  Receive Date: 20230610
  Receipt Date: 20240919
  Transmission Date: 20241017
  Serious: Yes (Other)
  Sender: NOVARTIS
  Company Number: US-002147023-NVSC2023US130249

PATIENT
  Sex: Male

DRUGS (1)
  1. ENTRESTO [Suspect]
     Active Substance: SACUBITRIL\VALSARTAN
     Indication: Cardiac failure
     Dosage: 1 DOSAGE FORM, BID (24.26 MG)
     Route: 048

REACTIONS (4)
  - Diabetes mellitus [Unknown]
  - Atrial fibrillation [Unknown]
  - Illness [Unknown]
  - Muscular dystrophy [Unknown]
